FAERS Safety Report 5825808-7 (Version None)
Quarter: 2008Q3

REPORT INFORMATION
  Report Type: 
  Country: None (occurrence: None)
  Receive Date: 20080729
  Receipt Date: 20080716
  Transmission Date: 20090109
  Serious: Yes (Hospitalization)
  Sender: FDA-Public Use
  Company Number: JP-ASTRAZENECA-2008AP04853

PATIENT
  Age: 48 Year
  Sex: Male

DRUGS (5)
  1. CRESTOR [Suspect]
     Route: 048
  2. AMARYL [Suspect]
     Route: 048
  3. NORVASC [Suspect]
     Route: 048
  4. CALBLOCK [Concomitant]
     Route: 048
  5. BASEN [Concomitant]
     Route: 048

REACTIONS (2)
  - CEREBROVASCULAR ACCIDENT [None]
  - GYNAECOMASTIA [None]
